FAERS Safety Report 13275046 (Version 2)
Quarter: 2017Q1

REPORT INFORMATION
  Report Type: Spontaneous
  Country: ES (occurrence: ES)
  Receive Date: 20170227
  Receipt Date: 20170314
  Transmission Date: 20170428
  Serious: Yes (Other)
  Sender: FDA-Public Use
  Company Number: ES-AMGEN-ESPSP2017029385

PATIENT
  Sex: Male

DRUGS (5)
  1. DEXAMETHASONE. [Concomitant]
     Active Substance: DEXAMETHASONE
     Dosage: UNK
  2. KYPROLIS [Suspect]
     Active Substance: CARFILZOMIB
     Dosage: 45 UNK, ON DAY EIGHT AND DAY NINE IN THE SECOND WEEK
     Route: 065
  3. KYPROLIS [Suspect]
     Active Substance: CARFILZOMIB
     Dosage: 56 UNK, UNK, FROM THIRD WEEK
     Route: 065
  4. KYPROLIS [Suspect]
     Active Substance: CARFILZOMIB
     Indication: PRODUCT USED FOR UNKNOWN INDICATION
     Dosage: 20 UNK, ON DAY ONE AND DAY TWO OF FIRST WEEK
     Route: 065
  5. KYPROLIS [Suspect]
     Active Substance: CARFILZOMIB
     Dosage: UNK
     Route: 065

REACTIONS (5)
  - Renal tubular necrosis [Not Recovered/Not Resolved]
  - Bacteraemia [Unknown]
  - Colonoscopy [Unknown]
  - Asthenia [Unknown]
  - Acute kidney injury [Not Recovered/Not Resolved]
